FAERS Safety Report 9944835 (Version 1)
Quarter: 2014Q1

REPORT INFORMATION
  Report Type: Report from Study
  Country: US (occurrence: US)
  Receive Date: 20140303
  Receipt Date: 20140303
  Transmission Date: 20141002
  Serious: No
  Sender: FDA-Public Use
  Company Number: US-ABBVIE-13P-163-1055106-00

PATIENT
  Age: 61 Year
  Sex: Female

DRUGS (8)
  1. HUMIRA [Suspect]
     Indication: CROHN^S DISEASE
     Dates: start: 20130102
  2. LAMOTRIGINE [Concomitant]
     Indication: CONVULSION
  3. SYNTHROID [Concomitant]
     Indication: PRODUCT USED FOR UNKNOWN INDICATION
     Dosage: DAILY
  4. LISINOPRIL [Concomitant]
     Indication: BLOOD PRESSURE
     Dosage: DAILY
  5. BUDESONIDE [Concomitant]
     Indication: CROHN^S DISEASE
     Dosage: DAILY
  6. BUSPIRONE [Concomitant]
     Indication: NERVOUSNESS
  7. IMODIUM AKUT PLUS [Concomitant]
     Indication: NERVOUSNESS
  8. IBUPROFEN [Concomitant]
     Indication: NERVOUSNESS

REACTIONS (8)
  - Asthenia [Unknown]
  - Decreased appetite [Unknown]
  - Feeling abnormal [Unknown]
  - Back pain [Unknown]
  - Fatigue [Unknown]
  - Fatigue [Unknown]
  - Abdominal pain [Unknown]
  - Nausea [Unknown]
